FAERS Safety Report 15534177 (Version 2)
Quarter: 2018Q4

REPORT INFORMATION
  Report Type: Spontaneous
  Country: US (occurrence: US)
  Receive Date: 20181019
  Receipt Date: 20181023
  Transmission Date: 20190205
  Serious: Yes (Hospitalization)
  Sender: FDA-Public Use
  Company Number: US-PFIZER INC-2018419727

PATIENT
  Age: 42 Year
  Sex: Female

DRUGS (1)
  1. TPN ELECTROLYTES [Suspect]
     Active Substance: CALCIUM CHLORIDE\MAGNESIUM CHLORIDE\POTASSIUM CHLORIDE\SODIUM ACETATE ANHYDROUS\SODIUM CHLORIDE
     Indication: SMALL INTESTINAL OBSTRUCTION
     Dosage: UNK (CHRONIC)

REACTIONS (1)
  - Acrodermatitis enteropathica [Recovered/Resolved]
